FAERS Safety Report 9271222 (Version 1)
Quarter: 2013Q2

REPORT INFORMATION
  Report Type: Spontaneous
  Country: GB (occurrence: GB)
  Receive Date: 20130506
  Receipt Date: 20130506
  Transmission Date: 20140414
  Serious: Yes (Hospitalization, Disabling)
  Sender: FDA-Public Use
  Company Number: GB-AMGEN-GBRSP2013030347

PATIENT
  Age: 75 Year
  Sex: Female

DRUGS (8)
  1. DENOSUMAB [Suspect]
     Indication: OSTEOPOROSIS
     Dosage: 60 MG, UNK
     Route: 058
     Dates: start: 20130222, end: 20130225
  2. CALCEOS [Concomitant]
  3. FOLIC ACID [Concomitant]
  4. METHOTREXATE [Concomitant]
     Indication: RHEUMATOID ARTHRITIS
     Route: 048
  5. PARACETAMOL [Concomitant]
  6. SUSTANON                           /00418401/ [Concomitant]
  7. THYROXINE [Concomitant]
  8. VITAMIN B COMPLEX [Concomitant]

REACTIONS (2)
  - Pain [Recovering/Resolving]
  - Malaise [Recovering/Resolving]
